FAERS Safety Report 15454380 (Version 1)
Quarter: 2018Q3

REPORT INFORMATION
  Report Type: Spontaneous
  Country: US (occurrence: US)
  Receive Date: 20180928
  Receipt Date: 20180928
  Transmission Date: 20181010
  Serious: Yes (Other)
  Sender: FDA-Public Use
  Company Number: None

PATIENT
  Age: 36 Year
  Sex: Female
  Weight: 168.75 kg

DRUGS (15)
  1. LISINOPRIL. [Concomitant]
     Active Substance: LISINOPRIL
  2. GABAPENTIN. [Concomitant]
     Active Substance: GABAPENTIN
  3. OMEGA 3 [Concomitant]
     Active Substance: OMEGA-3 FATTY ACIDS
  4. HCTZ [Concomitant]
     Active Substance: HYDROCHLOROTHIAZIDE
  5. ADVIL [Concomitant]
     Active Substance: IBUPROFEN
  6. METHYLPENIDATE 20MG ER TABLETS [Suspect]
     Active Substance: METHYLPHENIDATE
     Indication: ATTENTION DEFICIT/HYPERACTIVITY DISORDER
     Dosage: ?          QUANTITY:1 TABLET(S);?
     Route: 048
     Dates: start: 20180920, end: 20180928
  7. METFORMIN [Concomitant]
     Active Substance: METFORMIN HYDROCHLORIDE
  8. VITAMIN D [Concomitant]
     Active Substance: CHOLECALCIFEROL
  9. FOLIC ACID, [Concomitant]
  10. ADVAIR DISK [Concomitant]
  11. TRAMADOL. [Concomitant]
     Active Substance: TRAMADOL
  12. MOBIC [Concomitant]
     Active Substance: MELOXICAM
  13. CLONAZEPAM. [Concomitant]
     Active Substance: CLONAZEPAM
  14. FUROSEMIDE. [Concomitant]
     Active Substance: FUROSEMIDE
  15. CPAP [Concomitant]
     Active Substance: DEVICE

REACTIONS (7)
  - Heart rate increased [None]
  - Cold sweat [None]
  - Poor quality sleep [None]
  - Headache [None]
  - Product substitution issue [None]
  - Tinnitus [None]
  - Hypertension [None]

NARRATIVE: CASE EVENT DATE: 20180928
